FAERS Safety Report 24797810 (Version 1)
Quarter: 2025Q1

REPORT INFORMATION
  Report Type: Spontaneous
  Country: US (occurrence: US)
  Receive Date: 20250102
  Receipt Date: 20250102
  Transmission Date: 20250408
  Serious: No
  Sender: ELI LILLY AND COMPANY
  Company Number: US-ELI_LILLY_AND_COMPANY-US202412019322

PATIENT
  Age: 43 Year
  Sex: Female

DRUGS (1)
  1. ZEPBOUND [Suspect]
     Active Substance: TIRZEPATIDE
     Indication: Weight control
     Route: 058
     Dates: start: 20241227

REACTIONS (5)
  - Headache [Recovered/Resolved]
  - Neck pain [Recovering/Resolving]
  - Spinal pain [Recovered/Resolved]
  - Back pain [Recovering/Resolving]
  - Vomiting [Recovered/Resolved]
